FAERS Safety Report 24844795 (Version 2)
Quarter: 2025Q1

REPORT INFORMATION
  Report Type: Spontaneous
  Country: JP (occurrence: JP)
  Receive Date: 20250115
  Receipt Date: 20250213
  Transmission Date: 20250409
  Serious: Yes (Death, Hospitalization)
  Sender: NOVARTIS
  Company Number: JP-002147023-NVSJ2025JP000891

PATIENT
  Age: 70 Year
  Sex: Male

DRUGS (2)
  1. TAFINLAR [Suspect]
     Active Substance: DABRAFENIB MESYLATE
     Indication: Thyroid cancer
     Route: 048
     Dates: end: 20241210
  2. MEKINIST [Suspect]
     Active Substance: TRAMETINIB DIMETHYL SULFOXIDE
     Indication: Thyroid cancer
     Route: 048
     Dates: end: 20241210

REACTIONS (2)
  - Thyroid cancer [Fatal]
  - Malignant neoplasm progression [Fatal]

NARRATIVE: CASE EVENT DATE: 20241210
